FAERS Safety Report 13531268 (Version 2)
Quarter: 2018Q4

REPORT INFORMATION
  Report Type: Spontaneous
  Country: US (occurrence: US)
  Receive Date: 20170510
  Receipt Date: 20181206
  Transmission Date: 20190204
  Serious: Yes (Other)
  Sender: FDA-Public Use
  Company Number: US-PFIZER INC-2016561260

PATIENT
  Age: 63 Year
  Sex: Male
  Weight: 77 kg

DRUGS (10)
  1. LYRICA [Suspect]
     Active Substance: PREGABALIN
     Indication: SPINAL OPERATION
     Dosage: 300 MG, 2X/DAY
     Route: 048
     Dates: start: 20160926
  2. ASPIRIN E.C [Concomitant]
     Active Substance: ASPIRIN
     Indication: ATTENTION DEFICIT/HYPERACTIVITY DISORDER
     Dosage: 325 MG, DAILY
     Dates: start: 20150318
  3. BUPROPION HCL [Concomitant]
     Active Substance: BUPROPION HYDROCHLORIDE
     Indication: BACK PAIN
     Dosage: 100 MG, 2X/DAY
     Dates: start: 20160615
  4. CLONIDINE HCL [Concomitant]
     Active Substance: CLONIDINE HYDROCHLORIDE
     Dosage: 0.1 MG, DAILY
     Dates: start: 20161006
  5. METOPROLOL TARTRATE. [Concomitant]
     Active Substance: METOPROLOL TARTRATE
     Dosage: 12.5 MG, 2X/DAY
     Dates: start: 20161013
  6. LYRICA [Suspect]
     Active Substance: PREGABALIN
     Indication: BACK PAIN
     Dosage: 300 MG, 2X/DAY
     Route: 048
     Dates: start: 2006
  7. CYCLOBENZAPRINE HCL [Concomitant]
     Active Substance: CYCLOBENZAPRINE HYDROCHLORIDE
     Dosage: 10 MG, AS NEEDED (THREE TIMES DAILY)
     Dates: start: 20161026
  8. HYDROCODONE/ACETAMINOPHEN [Concomitant]
     Active Substance: ACETAMINOPHEN\HYDROCODONE
     Indication: BACK PAIN
     Dosage: 1 DF, AS NEEDED  (HYDROCODONE: 5MG; ACETAMINOPHEN: 325MG), EVERY FOUR HOURS
     Dates: start: 20160914
  9. ALEVE PM [Concomitant]
     Active Substance: DIPHENHYDRAMINE HYDROCHLORIDE\NAPROXEN SODIUM
     Dosage: 1 DF, 1X/DAY
     Route: 048
  10. PROAIR HFA [Concomitant]
     Active Substance: ALBUTEROL SULFATE
     Dosage: 2 DF, 2X/DAY
     Dates: start: 20160406

REACTIONS (6)
  - Peripheral swelling [Unknown]
  - Joint swelling [Unknown]
  - Melanocytic naevus [Unknown]
  - Erythema [Unknown]
  - Angioedema [Unknown]
  - Pruritus [Unknown]
